FAERS Safety Report 7212710-1 (Version None)
Quarter: 2011Q1

REPORT INFORMATION
  Report Type: 
  Country: None (occurrence: None)
  Receive Date: 20110106
  Receipt Date: 20101229
  Transmission Date: 20110831
  Serious: Yes (Other)
  Sender: FDA-Public Use
  Company Number: US-JNJFOC-20101209120

PATIENT
  Sex: Female
  Weight: 69.85 kg

DRUGS (6)
  1. REMICADE [Suspect]
     Indication: RHEUMATOID ARTHRITIS
     Route: 042
  2. ISONIAZID [Concomitant]
     Route: 048
  3. PREDNISONE [Concomitant]
     Indication: ARTHRITIS
     Route: 048
  4. REMICADE [Suspect]
     Route: 042
  5. PLAQUENIL [Concomitant]
     Indication: ARTHRITIS
     Route: 048
  6. IMURAN [Concomitant]
     Indication: ARTHRITIS
     Route: 048

REACTIONS (6)
  - FEELING HOT [None]
  - ASTHENIA [None]
  - HYPOAESTHESIA ORAL [None]
  - INFUSION RELATED REACTION [None]
  - VISION BLURRED [None]
  - THROAT TIGHTNESS [None]
